FAERS Safety Report 6331574-1 (Version None)
Quarter: 2009Q3

REPORT INFORMATION
  Report Type: 
  Country: None (occurrence: None)
  Receive Date: 20090827
  Receipt Date: 20090730
  Transmission Date: 20100115
  Serious: No
  Sender: FDA-Public Use
  Company Number: US-JNJFOC-20090800158

PATIENT
  Age: 83 Year
  Sex: Female

DRUGS (2)
  1. INVEGA [Suspect]
     Indication: DEMENTIA
     Route: 048
  2. NAMENDA [Concomitant]
     Indication: DEMENTIA
     Route: 048

REACTIONS (2)
  - MUSCULOSKELETAL STIFFNESS [None]
  - RESTLESSNESS [None]
